FAERS Safety Report 9391304 (Version 4)
Quarter: 2013Q3

REPORT INFORMATION
  Report Type: Report from Study
  Country: US (occurrence: US)
  Receive Date: 20130709
  Receipt Date: 20130819
  Transmission Date: 20140515
  Serious: Yes (Hospitalization, Other)
  Sender: FDA-Public Use
  Company Number: US-ALEXION-A201301530

PATIENT
  Age: 25 Year
  Sex: Female
  Weight: 106 kg

DRUGS (21)
  1. ECULIZUMAB [Suspect]
     Indication: HAEMOLYTIC URAEMIC SYNDROME
     Dosage: 1200 MG, Q2W
     Route: 042
  2. ANTIHYPERTENSIVES [Concomitant]
     Indication: HYPERTENSION
     Dosage: UNK
  3. PROTON PUMP INHIBITORS [Concomitant]
     Indication: GASTROOESOPHAGEAL REFLUX DISEASE
     Dosage: UNK
  4. NORVASC [Concomitant]
     Dosage: UNK
  5. AZATHIOPRINE [Concomitant]
     Dosage: UNK
  6. CARVEDILOL [Concomitant]
     Dosage: UNK
  7. CINACALCET [Concomitant]
     Dosage: UNK
  8. CITALOPRAM [Concomitant]
     Dosage: UNK
  9. ERGOCALCIFEROL [Concomitant]
     Dosage: UNK
  10. HYDRALAZINE [Concomitant]
     Dosage: UNK
  11. LEVAQUIN [Concomitant]
     Dosage: UNK
  12. LOSARTAN [Concomitant]
     Dosage: UNK
  13. REGLAN [Concomitant]
     Dosage: UNK
  14. DILTIAZEM [Concomitant]
     Dosage: UNK
  15. NEXIUM [Concomitant]
     Dosage: UNK
  16. SINGULAIR [Concomitant]
     Dosage: UNK
  17. PROGRAF [Concomitant]
     Dosage: UNK
  18. PREDNISONE [Concomitant]
     Dosage: UNK
  19. VALCYTE [Concomitant]
     Dosage: UNK
  20. ZOLPIDEM [Concomitant]
     Dosage: UNK
  21. MINOXIDIL [Concomitant]
     Dosage: UNK

REACTIONS (1)
  - Pneumonia [Recovered/Resolved]
